FAERS Safety Report 4958119-2 (Version None)
Quarter: 2006Q1

REPORT INFORMATION
  Report Type: 
  Country: None (occurrence: None)
  Receive Date: 20060127
  Receipt Date: 20041202
  Transmission Date: 20060701
  Serious: Yes (Hospitalization)
  Sender: FDA-Public Use
  Company Number: 04-12-1689

PATIENT
  Age: 48 Year
  Sex: Female

DRUGS (4)
  1. CLOZAPINE [Suspect]
     Indication: PSYCHOTIC DISORDER
     Dosage: 600MG QD; ORAL
     Route: 048
     Dates: start: 19991001
  2. SYMMETREL [Concomitant]
  3. ZYPREXA [Concomitant]
  4. COGENTIN [Concomitant]

REACTIONS (1)
  - CONVULSION [None]
